FAERS Safety Report 5480187-2 (Version None)
Quarter: 2007Q4

REPORT INFORMATION
  Report Type: 
  Country: None (occurrence: None)
  Receive Date: 20071009
  Receipt Date: 20070926
  Transmission Date: 20080405
  Serious: Yes (Hospitalization)
  Sender: FDA-Public Use
  Company Number: US-ELI_LILLY_AND_COMPANY-US200709006754

PATIENT
  Sex: Female
  Weight: 82.54 kg

DRUGS (3)
  1. TERIPARATIDE [Suspect]
     Indication: OSTEOPOROSIS
     Dosage: 20 UG, UNK
     Route: 058
     Dates: start: 20060712, end: 20070926
  2. PREVACID [Concomitant]
     Indication: REFLUX GASTRITIS
  3. VITAMIN D3 [Concomitant]
     Dates: start: 20060629

REACTIONS (1)
  - NEPHROLITHIASIS [None]
